FAERS Safety Report 5639116-0 (Version None)
Quarter: 2008Q1

REPORT INFORMATION
  Report Type: 
  Country: None (occurrence: None)
  Receive Date: 20080226
  Receipt Date: 20080214
  Transmission Date: 20080703
  Serious: Yes (Hospitalization, Congenital Anomaly)
  Sender: FDA-Public Use
  Company Number: FR-ELI_LILLY_AND_COMPANY-FR200802003177

PATIENT
  Weight: 5020 kg

DRUGS (10)
  1. PROZAC [Suspect]
     Dosage: UNK, UNKNOWN
     Route: 064
     Dates: start: 20070901, end: 20071121
  2. ZYPREXA [Suspect]
     Dosage: UNK, UNKNOWN
     Route: 064
     Dates: end: 20071121
  3. LARGACTIL [Concomitant]
     Dosage: UNK, UNKNOWN
     Route: 064
     Dates: start: 20070901, end: 20071121
  4. DEPAKOTE [Concomitant]
     Dosage: UNK, UNKNOWN
     Route: 064
     Dates: end: 20070901
  5. TRIMEPRAZINE TAB [Concomitant]
     Dosage: UNK, UNKNOWN
     Route: 064
     Dates: end: 20070901
  6. VALIUM [Concomitant]
     Dosage: UNK, UNKNOWN
     Route: 064
     Dates: end: 20070901
  7. MEPRONIZINE [Concomitant]
     Dosage: UNK, UNKNOWN
     Route: 064
     Dates: end: 20070901
  8. RIVOTRIL [Concomitant]
     Dosage: UNK, UNKNOWN
     Route: 064
     Dates: end: 20070901
  9. NOCTAMIDE [Concomitant]
     Dosage: UNK, UNKNOWN
     Route: 064
     Dates: end: 20070901
  10. SERESTA [Concomitant]
     Dosage: UNK, UNKNOWN
     Route: 064
     Dates: end: 20070901

REACTIONS (1)
  - MACROSOMIA [None]
